FAERS Safety Report 9796646 (Version 1)
Quarter: 2014Q1

REPORT INFORMATION
  Report Type: Spontaneous
  Country: GB (occurrence: GB)
  Receive Date: 20140103
  Receipt Date: 20140103
  Transmission Date: 20141002
  Serious: Yes (Disabling)
  Sender: FDA-Public Use
  Company Number: GB-WATSON-2013-23870

PATIENT
  Age: 47 Year
  Sex: Male

DRUGS (2)
  1. CIPROFLOXACIN HYDROCHLORIDE (UNKNOWN) [Suspect]
     Indication: TRANSPLANT
     Dosage: UNK
     Route: 065
     Dates: start: 20111128, end: 20111128
  2. CO-TRIMOXAZOLE [Suspect]
     Indication: TRANSPLANT
     Dosage: UNK
     Route: 048
     Dates: start: 20111201

REACTIONS (1)
  - Clostridium difficile infection [Recovered/Resolved]
